FAERS Safety Report 8046975-3 (Version None)
Quarter: 2012Q1

REPORT INFORMATION
  Report Type: 
  Country: None (occurrence: None)
  Receive Date: 20120116
  Receipt Date: 20120106
  Transmission Date: 20120608
  Serious: Yes (Hospitalization)
  Sender: FDA-Public Use
  Company Number: US-BAYER-2011-075116

PATIENT
  Age: 37 Year
  Sex: Female
  Weight: 88.435 kg

DRUGS (4)
  1. PROZAC [Concomitant]
     Indication: DEPRESSION
     Dosage: UNK
     Dates: start: 19990101, end: 20080101
  2. CELEBREX [Concomitant]
     Indication: FIBROMYALGIA
     Dosage: UNK
     Dates: start: 20030101, end: 20090101
  3. GABAPENTIN [Concomitant]
     Indication: RESTLESS LEGS SYNDROME
     Dosage: UNK
     Dates: start: 20050101
  4. YAZ [Suspect]
     Indication: CONTRACEPTION
     Dosage: UNK
     Route: 048
     Dates: start: 20051110, end: 20080628

REACTIONS (2)
  - DEEP VEIN THROMBOSIS [None]
  - INJURY [None]
